FAERS Safety Report 13373119 (Version 1)
Quarter: 2017Q1

REPORT INFORMATION
  Report Type: Spontaneous
  Country: US (occurrence: US)
  Receive Date: 20170324
  Receipt Date: 20170324
  Transmission Date: 20170429
  Serious: No
  Sender: FDA-Public Use
  Company Number: None

PATIENT
  Age: 74 Year
  Sex: Female

DRUGS (11)
  1. OCALIVA [Suspect]
     Active Substance: OBETICHOLIC ACID
     Indication: CHOLANGITIS
     Route: 048
     Dates: end: 20170312
  2. ATENOLOL. [Concomitant]
     Active Substance: ATENOLOL
  3. CALCIUM+D3 [Concomitant]
  4. FLONASE SENS SUS [Concomitant]
  5. PROZAC [Concomitant]
     Active Substance: FLUOXETINE HYDROCHLORIDE
  6. METFORMIN [Concomitant]
     Active Substance: METFORMIN HYDROCHLORIDE
  7. PRAVASTATIN. [Concomitant]
     Active Substance: PRAVASTATIN
  8. URSODIOL. [Concomitant]
     Active Substance: URSODIOL
  9. ZYRTEC ALLGY [Concomitant]
  10. AMLODIPINE [Concomitant]
     Active Substance: AMLODIPINE BESYLATE
  11. LISINOPRIL. [Concomitant]
     Active Substance: LISINOPRIL

REACTIONS (6)
  - Night sweats [None]
  - Pruritus [None]
  - Fatigue [None]
  - Dizziness [None]
  - Influenza like illness [None]
  - Therapy cessation [None]

NARRATIVE: CASE EVENT DATE: 201703
